FAERS Safety Report 6160050-4 (Version None)
Quarter: 2009Q2

REPORT INFORMATION
  Report Type: 
  Country: None (occurrence: None)
  Receive Date: 20090420
  Receipt Date: 20090414
  Transmission Date: 20091009
  Serious: Yes (Hospitalization)
  Sender: FDA-Public Use
  Company Number: US-B.I. PHARMACEUTICALS,INC./RIDGEFIELD-2009-BP-00932BP

PATIENT
  Sex: Male

DRUGS (5)
  1. SPIRIVA [Suspect]
     Indication: DYSPNOEA
     Dosage: 18MCG
     Route: 055
     Dates: start: 20050101
  2. PLAVIX [Concomitant]
     Indication: ANTICOAGULANT THERAPY
  3. ASPIRIN [Concomitant]
     Indication: ANTICOAGULANT THERAPY
     Dosage: 325MG
  4. AMLODIPINE [Concomitant]
     Indication: HYPERTENSION
  5. PANTOPRAZOLE SODIUM [Concomitant]
     Indication: ABDOMINAL DISCOMFORT

REACTIONS (5)
  - ANEURYSM [None]
  - CARDIOVASCULAR DISORDER [None]
  - DRUG INEFFECTIVE [None]
  - EYE PAIN [None]
  - VISUAL ACUITY REDUCED [None]
